FAERS Safety Report 16403783 (Version 1)
Quarter: 2019Q2

REPORT INFORMATION
  Report Type: Spontaneous
  Country: US (occurrence: US)
  Receive Date: 20190501
  Receipt Date: 20190501
  Transmission Date: 20190711
  Serious: Yes (Hospitalization)
  Sender: FDA-Public Use
  Company Number: None

PATIENT
  Age: 35 Year
  Sex: Female

DRUGS (4)
  1. SMX/TMP [Concomitant]
     Active Substance: SULFAMETHOXAZOLE\TRIMETHOPRIM
  2. FAMOTIDINE. [Concomitant]
     Active Substance: FAMOTIDINE
  3. TACROLIMUS 1MG [Suspect]
     Active Substance: TACROLIMUS
     Route: 048
  4. PREDNISONE. [Concomitant]
     Active Substance: PREDNISONE

REACTIONS (3)
  - Nausea [None]
  - Vomiting [None]
  - Neutropenia [None]

NARRATIVE: CASE EVENT DATE: 20190422
